FAERS Safety Report 7280739-3 (Version None)
Quarter: 2011Q1

REPORT INFORMATION
  Report Type: 
  Country: None (occurrence: None)
  Receive Date: 20110208
  Receipt Date: 20110204
  Transmission Date: 20110831
  Serious: Yes (Other)
  Sender: FDA-Public Use
  Company Number: B0698597A

PATIENT
  Sex: Female

DRUGS (1)
  1. REQUIP [Suspect]
     Dosage: 10MG PER DAY
     Route: 065

REACTIONS (1)
  - HODGKIN'S DISEASE [None]
